FAERS Safety Report 15772883 (Version 3)
Quarter: 2019Q1

REPORT INFORMATION
  Report Type: Report from Study
  Country: US (occurrence: US)
  Receive Date: 20181228
  Receipt Date: 20190201
  Transmission Date: 20190417
  Serious: Yes (Other)
  Sender: FDA-Public Use
  Company Number: US-SHIRE-US201847144

PATIENT
  Age: 47 Year
  Sex: Female

DRUGS (2)
  1. TAKHZYRO [Suspect]
     Active Substance: LANADELUMAB-FLYO
     Indication: IMMUNE SYSTEM DISORDER
     Dosage: 300 MG, 1X/2WKS
     Route: 058
     Dates: start: 20181119
  2. TAKHZYRO [Suspect]
     Active Substance: LANADELUMAB-FLYO
     Dosage: 300 MG, 1X/2WKS
     Route: 058
     Dates: start: 20181203

REACTIONS (8)
  - Food poisoning [Unknown]
  - Sinusitis [Recovering/Resolving]
  - Urinary tract infection [Unknown]
  - Product dose omission [Recovering/Resolving]
  - Hereditary angioedema [Recovered/Resolved]
  - Injection site mass [Recovered/Resolved]
  - Injection site pain [Recovered/Resolved]
  - Hereditary angioedema [Unknown]

NARRATIVE: CASE EVENT DATE: 20181119
